FAERS Safety Report 5330201-X (Version None)
Quarter: 2007Q2

REPORT INFORMATION
  Report Type: 
  Country: None (occurrence: None)
  Receive Date: 20070515
  Receipt Date: 20070503
  Transmission Date: 20071010
  Serious: Yes (Hospitalization, Other)
  Sender: FDA-Public Use
  Company Number: 233578K07USA

PATIENT
  Age: 38 Year
  Sex: Female

DRUGS (3)
  1. REBIF [Suspect]
     Indication: MULTIPLE SCLEROSIS
     Dosage: 44 MCG, 3 IN 1 WEEKS, SUBCUTANEOUS
     Route: 058
     Dates: start: 20030318, end: 20070401
  2. TOPAMAX [Concomitant]
  3. SYNTHROID [Concomitant]

REACTIONS (5)
  - COLON CANCER METASTATIC [None]
  - DYSPNOEA [None]
  - METASTASES TO LIVER [None]
  - MUSCULOSKELETAL PAIN [None]
  - POST PROCEDURAL COMPLICATION [None]
